FAERS Safety Report 9340849 (Version 1)
Quarter: 2013Q2

REPORT INFORMATION
  Report Type: Spontaneous
  Country: US (occurrence: US)
  Receive Date: 20130610
  Receipt Date: 20130610
  Transmission Date: 20140414
  Serious: Yes (Other)
  Sender: FDA-Public Use
  Company Number: US-BAYER-2013-068476

PATIENT
  Age: 82 Year
  Sex: Male

DRUGS (10)
  1. ACETYLSALICYLIC ACID({=100 MG) [Suspect]
     Dosage: DAILY DOSE 81 MG
     Route: 048
  2. WARFARIN [Suspect]
     Dosage: UNK UNK, QD
     Route: 048
  3. GLIPIZIDE [Concomitant]
     Indication: DIABETES MELLITUS
     Dosage: 10 MG, BID
     Route: 048
  4. DIGOXIN [Concomitant]
     Indication: ATRIAL FIBRILLATION
     Dosage: DAILY DOSE .125 MG
  5. FENOFIBRATE [Concomitant]
     Indication: HYPERLIPIDAEMIA
     Dosage: DAILY DOSE 145 MG
  6. ALLOPURINOL [Concomitant]
     Indication: GOUT
     Dosage: DAILY DOSE 100 MG
  7. NOVOLIN 70/30 INNOLET [Concomitant]
     Indication: DIABETES MELLITUS
  8. HYDRALAZINE [Concomitant]
     Indication: HYPERTENSION
     Dosage: 50 MG, TID
     Route: 048
  9. METOPROLOL TARTRATE [Concomitant]
     Indication: HYPERTENSION
     Dosage: 75 MG, BID
     Route: 048
  10. AMLODIPINE BESYLATE [Concomitant]
     Indication: HYPERTENSION
     Dosage: DAILY DOSE 5 MG

REACTIONS (2)
  - Lacrimal haemorrhage [Recovered/Resolved]
  - Blepharitis [None]
